FAERS Safety Report 8247659-9 (Version None)
Quarter: 2012Q1

REPORT INFORMATION
  Report Type: 
  Country: None (occurrence: None)
  Receive Date: 20120330
  Receipt Date: 20120328
  Transmission Date: 20120608
  Serious: Yes (Death, Hospitalization, Other)
  Sender: FDA-Public Use
  Company Number: BR-ABBOTT-12P-020-0897080-00

PATIENT
  Sex: Female

DRUGS (1)
  1. HUMIRA [Suspect]
     Indication: CROHN'S DISEASE
     Dates: start: 20100207

REACTIONS (3)
  - GASTROINTESTINAL DISORDER [None]
  - TRACHEOSTOMY MALFUNCTION [None]
  - POST PROCEDURAL COMPLICATION [None]
